FAERS Safety Report 4315369-6 (Version None)
Quarter: 2004Q1

REPORT INFORMATION
  Report Type: 
  Country: None (occurrence: None)
  Receive Date: 20040311
  Receipt Date: 20040213
  Transmission Date: 20041129
  Serious: Yes (Hospitalization, Other)
  Sender: FDA-Public Use
  Company Number: PHNU2004DE00903

PATIENT
  Sex: Female
  Weight: 79 kg

DRUGS (21)
  1. CIBADREX [Suspect]
     Indication: HYPERTENSION
     Dosage: 1 DF, QD
     Route: 048
     Dates: start: 20030401
  2. EUTHYROX [Concomitant]
     Indication: HYPOTHYROIDISM
     Dosage: 1 DF, QD
  3. GODAMED [Concomitant]
     Indication: PROPHYLAXIS
     Dosage: 1 DF, QD
  4. KAVERI [Concomitant]
     Indication: CEREBROVASCULAR DISORDER
     Dosage: 1 DF, BID
  5. ARTHROTABS [Concomitant]
     Indication: OSTEOARTHRITIS
     Dosage: 2 DF, BID
  6. BRISERIN MITE [Concomitant]
  7. ANTISTAX ^BOEHRINGER INGELHEIM^ [Concomitant]
  8. EUNOVA [Concomitant]
  9. HEPAR SL FORTE [Concomitant]
  10. HEPARIN SODIUM [Concomitant]
  11. KYTTA-PLASMA [Concomitant]
  12. OPTOVIT [Concomitant]
  13. HYDROCORTISONE [Concomitant]
  14. NOVALGIN                                /SCH/ [Concomitant]
  15. SANHELIOS EINSCHLAF [Concomitant]
  16. VOLTAREN EMULGEL ^NOVARTIS^ [Concomitant]
  17. PYRIDOXINE HYDROCHLORIDE [Concomitant]
  18. MIROTON [Concomitant]
  19. OCTENISEPT [Concomitant]
  20. FLORADIX KRAUTERBLUT               /01642601/ [Concomitant]
  21. FRANZBRANNTWEIN [Concomitant]

REACTIONS (2)
  - CONDITION AGGRAVATED [None]
  - PSORIASIS [None]
